FAERS Safety Report 9780815 (Version 2)
Quarter: 2014Q1

REPORT INFORMATION
  Report Type: Report from Study
  Country: AR (occurrence: AR)
  Receive Date: 20131224
  Receipt Date: 20140115
  Transmission Date: 20141002
  Serious: Yes (Other)
  Sender: FDA-Public Use
  Company Number: PHHY2013AR150868

PATIENT
  Sex: Female

DRUGS (1)
  1. DIOVAN [Suspect]
     Indication: HYPERTENSION
     Dosage: UNK UKN, UNK
     Route: 048
     Dates: end: 201311

REACTIONS (8)
  - Fall [Recovering/Resolving]
  - Foot fracture [Recovering/Resolving]
  - Blood pressure inadequately controlled [Unknown]
  - Drug ineffective [Unknown]
  - Gait disturbance [Unknown]
  - General physical health deterioration [Not Recovered/Not Resolved]
  - Joint swelling [Not Recovered/Not Resolved]
  - Blood pressure increased [Unknown]
